FAERS Safety Report 9287716 (Version 1)
Quarter: 2013Q2

REPORT INFORMATION
  Report Type: Spontaneous
  Country: AU (occurrence: AU)
  Receive Date: 20130514
  Receipt Date: 20130514
  Transmission Date: 20140414
  Serious: Yes (Other)
  Sender: FDA-Public Use
  Company Number: PHHY2013AU047336

PATIENT
  Age: 4 Year
  Sex: Female

DRUGS (3)
  1. SANDOSTATIN LAR [Suspect]
     Dosage: 10 MG, UNK
     Route: 030
     Dates: start: 20120613
  2. SANDOSTATIN LAR [Suspect]
     Dosage: 20 MG, UNK
     Route: 030
     Dates: start: 20120826, end: 20121114
  3. SANDOSTATIN LAR [Suspect]
     Dosage: 30 MG, MONTHLY
     Dates: start: 20121212

REACTIONS (4)
  - Hypopituitarism [Recovering/Resolving]
  - Hyperprolactinaemia [Recovered/Resolved]
  - Insulin-like growth factor increased [Unknown]
  - Therapeutic response decreased [Unknown]
